FAERS Safety Report 8370911-3 (Version None)
Quarter: 2012Q2

REPORT INFORMATION
  Report Type: 
  Country: None (occurrence: None)
  Receive Date: 20120518
  Receipt Date: 20110523
  Transmission Date: 20120825
  Serious: No
  Sender: FDA-Public Use
  Company Number: US-BAUSCH-2011BL003417

PATIENT
  Age: 89 Year
  Sex: Female

DRUGS (6)
  1. IPRATROPIUM BROMIDE [Suspect]
     Indication: OFF LABEL USE
     Route: 045
     Dates: start: 20110420
  2. MULTI-VITAMINS [Concomitant]
  3. SYNTHROID [Concomitant]
  4. IPRATROPIUM BROMIDE [Suspect]
     Indication: SINUS HEADACHE
     Route: 045
     Dates: start: 20110420
  5. CALCIUM CITRATE [Concomitant]
  6. LISINOPRIL [Concomitant]

REACTIONS (1)
  - EPISTAXIS [None]
